FAERS Safety Report 5514746-5 (Version None)
Quarter: 2007Q4

REPORT INFORMATION
  Report Type: 
  Country: None (occurrence: None)
  Receive Date: 20071113
  Receipt Date: 20071106
  Transmission Date: 20080405
  Serious: Yes (Life-Threatening)
  Sender: FDA-Public Use
  Company Number: CN-SANOFI-SYNTHELABO-A01200712489

PATIENT
  Age: 58 Year
  Sex: Male

DRUGS (4)
  1. CALCIUM FOLINATE [Concomitant]
     Indication: RECTAL CANCER STAGE III
     Dosage: UNK
     Route: 042
     Dates: start: 20060501
  2. CEPHALEXIN [Concomitant]
     Indication: UPPER RESPIRATORY TRACT INFECTION
     Route: 048
     Dates: start: 20060922, end: 20060923
  3. OXALIPLATIN [Suspect]
     Indication: RECTAL CANCER STAGE III
     Dosage: IN 500 ML GLUCOSE SOLUTION
     Route: 042
     Dates: start: 20060924, end: 20060924
  4. FLUOROURACIL [Concomitant]
     Indication: COLORECTAL CANCER STAGE III
     Dosage: UNK
     Route: 042
     Dates: start: 20060501

REACTIONS (2)
  - ANAPHYLACTIC SHOCK [None]
  - LARYNGOSPASM [None]
